FAERS Safety Report 18555386 (Version 1)
Quarter: 2020Q4

REPORT INFORMATION
  Report Type: Spontaneous
  Country: US (occurrence: US)
  Receive Date: 20201127
  Receipt Date: 20201127
  Transmission Date: 20210114
  Serious: Yes (Other)
  Sender: FDA-Public Use
  Company Number: US-NOVOPROD-750761

PATIENT
  Age: 60 Year
  Sex: Female
  Weight: 74.39 kg

DRUGS (2)
  1. LANTUS [Suspect]
     Active Substance: INSULIN GLARGINE
     Indication: DIABETES MELLITUS
     Dosage: 75 IU, QD AT NIGHT
     Route: 065
  2. NOVOLIN R [Suspect]
     Active Substance: INSULIN HUMAN
     Indication: DIABETES MELLITUS
     Dosage: 40-60 UNITS DAILY (DOSED 4 TIMES A DAY)
     Route: 058
     Dates: start: 2020

REACTIONS (2)
  - Blood glucose increased [Not Recovered/Not Resolved]
  - Costochondritis [Not Recovered/Not Resolved]

NARRATIVE: CASE EVENT DATE: 2020
